FAERS Safety Report 6410497-3 (Version None)
Quarter: 2009Q4

REPORT INFORMATION
  Report Type: 
  Country: None (occurrence: None)
  Receive Date: 20091022
  Receipt Date: 20091012
  Transmission Date: 20100525
  Serious: Yes (Other)
  Sender: FDA-Public Use
  Company Number: FR-NAPPMUNDI-GBR-2009-0005703

PATIENT
  Age: 70 Year
  Sex: Male

DRUGS (29)
  1. MORPHINE SULFATE (SIMILAR TO NDA 19-516) [Suspect]
     Indication: DRUG USE FOR UNKNOWN INDICATION
     Dosage: UNK
  2. DEXAMETHASONE [Suspect]
     Indication: DRUG USE FOR UNKNOWN INDICATION
  3. THALIDOMIDE [Suspect]
     Indication: DRUG USE FOR UNKNOWN INDICATION
  4. MELOXICAM [Suspect]
     Indication: DRUG USE FOR UNKNOWN INDICATION
  5. PAMIDRONIC ACID [Suspect]
     Indication: DRUG USE FOR UNKNOWN INDICATION
  6. CEFEPIME [Suspect]
     Indication: DRUG USE FOR UNKNOWN INDICATION
     Route: 042
  7. VANCOMYCIN [Suspect]
     Indication: DRUG USE FOR UNKNOWN INDICATION
     Route: 042
  8. FLUCONAZOLE [Suspect]
     Indication: DRUG USE FOR UNKNOWN INDICATION
     Route: 048
  9. NALOXONE [Suspect]
     Indication: DRUG USE FOR UNKNOWN INDICATION
  10. PARACETAMOL [Suspect]
     Indication: DRUG USE FOR UNKNOWN INDICATION
  11. PANTOPRAZOLE SODIUM [Suspect]
     Indication: DRUG USE FOR UNKNOWN INDICATION
  12. DIPHENHYDRAMINE HCL [Suspect]
     Indication: DRUG USE FOR UNKNOWN INDICATION
     Dosage: UNK
  13. HEPARIN [Suspect]
     Indication: DRUG USE FOR UNKNOWN INDICATION
  14. ZOLPIDEM [Suspect]
     Indication: DRUG USE FOR UNKNOWN INDICATION
  15. AMIODARONE HCL [Suspect]
     Indication: DRUG USE FOR UNKNOWN INDICATION
  16. ALPRAZOLAM [Suspect]
     Indication: DRUG USE FOR UNKNOWN INDICATION
  17. NEUPOGEN [Suspect]
     Indication: DRUG USE FOR UNKNOWN INDICATION
  18. ENOXAPARIN SODIUM [Suspect]
     Indication: DRUG USE FOR UNKNOWN INDICATION
  19. MEROPENEM [Suspect]
     Indication: DRUG USE FOR UNKNOWN INDICATION
     Route: 042
  20. DAPTOMYCIN [Suspect]
     Indication: DRUG USE FOR UNKNOWN INDICATION
  21. TOBRAMYCIN [Suspect]
     Indication: DRUG USE FOR UNKNOWN INDICATION
  22. CASPOFUNGIN [Suspect]
     Indication: DRUG USE FOR UNKNOWN INDICATION
  23. OMEPRAZOLE [Suspect]
     Indication: DRUG USE FOR UNKNOWN INDICATION
  24. PROMETHAZINE [Suspect]
     Indication: DRUG USE FOR UNKNOWN INDICATION
  25. LIDOCAINE [Suspect]
     Indication: DRUG USE FOR UNKNOWN INDICATION
  26. PEG-3350 [Suspect]
     Indication: DRUG USE FOR UNKNOWN INDICATION
  27. TESTOSTERONE ENANTHATE [Suspect]
     Indication: DRUG USE FOR UNKNOWN INDICATION
  28. RANITIDINE [Suspect]
     Indication: DRUG USE FOR UNKNOWN INDICATION
  29. HYDROCODONE [Suspect]
     Indication: DRUG USE FOR UNKNOWN INDICATION

REACTIONS (2)
  - ACUTE GENERALISED EXANTHEMATOUS PUSTULOSIS [None]
  - ATRIAL FIBRILLATION [None]
